FAERS Safety Report 9659500 (Version 1)
Quarter: 2013Q4

REPORT INFORMATION
  Report Type: Spontaneous
  Country: BR (occurrence: BR)
  Receive Date: 20131031
  Receipt Date: 20131031
  Transmission Date: 20140711
  Serious: Yes (Other)
  Sender: FDA-Public Use
  Company Number: PHHY2013BR122968

PATIENT
  Sex: Female

DRUGS (4)
  1. CARBAMAZEPINE [Suspect]
     Dosage: UNK UKN, UNK
  2. ACICLOVIR [Suspect]
     Indication: HERPES ZOSTER
     Dosage: UNK UKN, UNK
  3. TYLEX /00116401/ [Suspect]
     Dosage: UNK UKN, Q4H
  4. LYRICA [Suspect]
     Indication: HERPES ZOSTER
     Dosage: UNK UKN, Q12H
     Dates: start: 20131012

REACTIONS (7)
  - Herpes zoster [Unknown]
  - Balance disorder [Unknown]
  - Hypoaesthesia [Unknown]
  - Muscle twitching [Unknown]
  - Back pain [Unknown]
  - Pain [Unknown]
  - Dizziness [Unknown]
